FAERS Safety Report 23676140 (Version 1)
Quarter: 2024Q1

REPORT INFORMATION
  Report Type: Report from Study
  Country: US (occurrence: US)
  Receive Date: 20240327
  Receipt Date: 20240327
  Transmission Date: 20240409
  Serious: No
  Sender: FDA-Public Use
  Company Number: US-ALXN-202403USA001250US

PATIENT
  Sex: Male

DRUGS (1)
  1. STRENSIQ [Suspect]
     Active Substance: ASFOTASE ALFA
     Indication: Product used for unknown indication
     Dosage: UNK
     Route: 065

REACTIONS (4)
  - Injection site atrophy [Not Recovered/Not Resolved]
  - Injection site bruising [Not Recovered/Not Resolved]
  - Contusion [Not Recovered/Not Resolved]
  - Injection site induration [Not Recovered/Not Resolved]
